FAERS Safety Report 26059393 (Version 1)
Quarter: 2025Q4

REPORT INFORMATION
  Report Type: Spontaneous
  Country: US (occurrence: US)
  Receive Date: 20251118
  Receipt Date: 20251118
  Transmission Date: 20260117
  Serious: No
  Sender: ALVOGEN
  Company Number: US-ALVOGEN-2024095818

PATIENT
  Sex: Female

DRUGS (4)
  1. TERIPARATIDE [Suspect]
     Active Substance: TERIPARATIDE
     Indication: Osteoporosis
     Dosage: 250 MCG/ML, EXPIRY DATE: 31-JUL-2025, S/N 053175890884?620MCG/2.48ML 1CT
     Route: 058
     Dates: start: 20241026
  2. TERIPARATIDE [Suspect]
     Active Substance: TERIPARATIDE
     Indication: Osteoporosis
     Dosage: EXPIRY DATE: 31-JUL-2026?STRENGTH: 250MCG/ML?620MCG/2.48ML 1CT
     Route: 058
  3. TERIPARATIDE [Suspect]
     Active Substance: TERIPARATIDE
     Indication: Osteoporosis
     Dosage: EXPIRY DATE: OCT-2025?STRENGTH: 250MCG/ML?620MCG/2.48ML 1CT
     Route: 058
     Dates: start: 20250325
  4. TERIPARATIDE [Suspect]
     Active Substance: TERIPARATIDE
     Indication: Osteoporosis
     Dosage: EXPIRY DATE: AUG-2026?STRENGTH: 250MCG/ML
     Route: 058
     Dates: start: 2025

REACTIONS (13)
  - Injection site induration [Unknown]
  - Injection site haemorrhage [Unknown]
  - Injection site bruising [Unknown]
  - Injection site pain [Unknown]
  - Injection site swelling [Unknown]
  - Headache [Unknown]
  - Dizziness [Recovered/Resolved]
  - Product contamination with body fluid [Unknown]
  - Device delivery system issue [Unknown]
  - Device malfunction [Unknown]
  - Product dose omission issue [Unknown]
  - Drug ineffective [Unknown]
  - Device defective [Unknown]

NARRATIVE: CASE EVENT DATE: 20240101
